FAERS Safety Report 6788206-8 (Version None)
Quarter: 2010Q2

REPORT INFORMATION
  Report Type: 
  Country: None (occurrence: None)
  Receive Date: 20100621
  Receipt Date: 20100608
  Transmission Date: 20101027
  Serious: Yes (Hospitalization, Other)
  Sender: FDA-Public Use
  Company Number: CL-144-2010

PATIENT
  Age: 74 Year
  Sex: Female
  Weight: 76.2043 kg

DRUGS (6)
  1. TETRACYCLINE HCL (TETRACYCLINE HCL) UNKNOWN [Suspect]
     Indication: GASTRITIS BACTERIAL
     Dates: start: 20100511, end: 20100501
  2. METRONIDAZOLE [Suspect]
     Indication: GASTRITIS BACTERIAL
     Dates: start: 20100511, end: 20100501
  3. CLARITHROMYCIN UNK [Suspect]
     Indication: GASTRITIS BACTERIAL
     Dates: start: 20100514, end: 20100516
  4. METOPROLOL SUCCINATE [Concomitant]
  5. TRIAMTERENE AND HYDROCHLOROTHIAZIDE [Concomitant]
  6. SUTENT [Concomitant]

REACTIONS (5)
  - DECREASED APPETITE [None]
  - DEHYDRATION [None]
  - MALAISE [None]
  - WEIGHT DECREASED [None]
  - YELLOW SKIN [None]
